FAERS Safety Report 18734162 (Version 1)
Quarter: 2021Q1

REPORT INFORMATION
  Report Type: Spontaneous
  Country: US (occurrence: US)
  Receive Date: 20210113
  Receipt Date: 20210113
  Transmission Date: 20210419
  Serious: No
  Sender: FDA-Public Use
  Company Number: US-TEVA-2021-US-1867225

PATIENT
  Age: 69 Year
  Sex: Male

DRUGS (1)
  1. TRAMADOL HYDROCHLORIDE. [Suspect]
     Active Substance: TRAMADOL HYDROCHLORIDE
     Dosage: 250 MILLIGRAM DAILY; 5 TABLETS PER DAY
     Route: 065

REACTIONS (4)
  - Thinking abnormal [Unknown]
  - Lethargy [Unknown]
  - Somnolence [Unknown]
  - Depression [Unknown]
